FAERS Safety Report 18397276 (Version 1)
Quarter: 2020Q4

REPORT INFORMATION
  Report Type: Spontaneous
  Country: PL (occurrence: PL)
  Receive Date: 20201019
  Receipt Date: 20201019
  Transmission Date: 20210114
  Serious: Yes (Other)
  Sender: FDA-Public Use
  Company Number: PL-TEVA-2020-PL-1838768

PATIENT
  Age: 30 Year
  Sex: Male

DRUGS (4)
  1. METOPROLOL TARTRATE. [Concomitant]
     Active Substance: METOPROLOL TARTRATE
  2. LEVOXA [Suspect]
     Active Substance: LEVOFLOXACIN
     Dates: start: 20180512
  3. MYFORTIC [Concomitant]
     Active Substance: MYCOPHENOLATE SODIUM
  4. PROGRAF [Concomitant]
     Active Substance: TACROLIMUS

REACTIONS (5)
  - Erectile dysfunction [Recovering/Resolving]
  - Back pain [Recovering/Resolving]
  - Heart rate increased [Recovering/Resolving]
  - Headache [Recovering/Resolving]
  - Penis disorder [Recovering/Resolving]

NARRATIVE: CASE EVENT DATE: 20180515
